FAERS Safety Report 4730440-2 (Version None)
Quarter: 2005Q3

REPORT INFORMATION
  Report Type: 
  Country: None (occurrence: None)
  Receive Date: 20050801
  Receipt Date: 20050627
  Transmission Date: 20060218
  Serious: Yes (Other)
  Sender: FDA-Public Use
  Company Number: US-MERCK-0507USA04114

PATIENT
  Age: 49 Year
  Sex: Male

DRUGS (3)
  1. VIOXX [Suspect]
     Route: 048
     Dates: end: 20050101
  2. CELEBREX [Concomitant]
     Route: 065
     Dates: end: 20050101
  3. ZOCOR [Concomitant]
     Route: 048
     Dates: end: 20050126

REACTIONS (1)
  - ACUTE MYOCARDIAL INFARCTION [None]
